FAERS Safety Report 11120983 (Version 1)
Quarter: 2015Q2

REPORT INFORMATION
  Report Type: Spontaneous
  Country: US (occurrence: None)
  Receive Date: 20150515
  Receipt Date: 20150515
  Transmission Date: 20150821
  Serious: Yes (Other)
  Sender: FDA-Public Use
  Company Number: US-H14001-15-00713

PATIENT
  Age: 5 Year
  Sex: Male
  Weight: 12 kg

DRUGS (2)
  1. TACROLIMUS (TACROLIMUS) (UNKNOWN) (TACROLIMUS) [Suspect]
     Active Substance: TACROLIMUS
     Indication: PRODUCT USED FOR UNKNOWN INDICATION
     Dosage: 0.2 MG/KG (0.1 MG/KG, 2 IN 1 D), UNKNOWN
  2. NICARDIPINE [Suspect]
     Active Substance: NICARDIPINE
     Indication: HYPERTENSION
     Route: 041

REACTIONS (2)
  - Drug level above therapeutic [None]
  - Drug interaction [None]
